FAERS Safety Report 7898129-9 (Version None)
Quarter: 2011Q4

REPORT INFORMATION
  Report Type: 
  Country: None (occurrence: None)
  Receive Date: 20111103
  Receipt Date: 20111019
  Transmission Date: 20120403
  Serious: Yes (Other)
  Sender: FDA-Public Use
  Company Number: 2011MPI00253

PATIENT
  Age: 24 Year
  Sex: Male

DRUGS (4)
  1. BRENTUXIMAB VEDOTIN (BRENTUXIMAB VEDOTIN) INJECTION [Suspect]
     Indication: HODGKIN'S DISEASE
     Dosage: 140 MG
     Dates: start: 20110419, end: 20110826
  2. BACTRIUM DS (SULFAMETHOXAZOLE, TRIMETHOPRIM) [Concomitant]
  3. RABEPRAZOLE SODIUM [Concomitant]
  4. ACYCLVOIR (ACICLOVIR) [Concomitant]

REACTIONS (1)
  - LOBAR PNEUMONIA [None]
